FAERS Safety Report 15856449 (Version 1)
Quarter: 2019Q1

REPORT INFORMATION
  Report Type: Report from Study
  Country: US (occurrence: US)
  Receive Date: 20190123
  Receipt Date: 20190123
  Transmission Date: 20190417
  Serious: Yes (Life-Threatening, Hospitalization, Other)
  Sender: FDA-Public Use
  Company Number: US-BION-007750

PATIENT

DRUGS (1)
  1. LOPERAMIDE HYDROCHLORIDE. [Suspect]
     Active Substance: LOPERAMIDE HYDROCHLORIDE
     Dosage: GREATER THAN OR EQUAL TO 200 MG

REACTIONS (3)
  - Ventricular arrhythmia [Recovered/Resolved]
  - Electrocardiogram QT prolonged [Unknown]
  - Drug abuse [Unknown]
